FAERS Safety Report 17623228 (Version 2)
Quarter: 2020Q3

REPORT INFORMATION
  Report Type: Spontaneous
  Country: US (occurrence: US)
  Receive Date: 20200403
  Receipt Date: 20200715
  Transmission Date: 20201102
  Serious: Yes (Other)
  Sender: FDA-Public Use
  Company Number: US-PFIZER INC-2020136700

PATIENT
  Age: 71 Year
  Sex: Male

DRUGS (1)
  1. VYNDAMAX [Suspect]
     Active Substance: TAFAMIDIS
     Indication: AMYLOIDOSIS SENILE
     Dosage: 61 MG, UNK

REACTIONS (5)
  - Hypoacusis [Unknown]
  - Product use in unapproved indication [Unknown]
  - Off label use [Unknown]
  - Ascites [Unknown]
  - Dyspnoea [Unknown]
